FAERS Safety Report 6752619-0 (Version None)
Quarter: 2010Q2

REPORT INFORMATION
  Report Type: 
  Country: None (occurrence: None)
  Receive Date: 20100601
  Receipt Date: 20100601
  Transmission Date: 20101027
  Serious: No
  Sender: FDA-Public Use
  Company Number: None

PATIENT
  Sex: Male
  Weight: 149.687 kg

DRUGS (2)
  1. EFFEXOR [Suspect]
     Indication: ANXIETY
     Dosage: 150 MG 2 PO
     Route: 048
     Dates: start: 20000615, end: 20080815
  2. EFFEXOR [Suspect]
     Indication: DEPRESSION
     Dosage: 150 MG 2 PO
     Route: 048
     Dates: start: 20000615, end: 20080815

REACTIONS (9)
  - AMNESIA [None]
  - CONFUSIONAL STATE [None]
  - DISORIENTATION [None]
  - DIZZINESS [None]
  - DYSKINESIA [None]
  - HYPOAESTHESIA ORAL [None]
  - IMPAIRED WORK ABILITY [None]
  - NAUSEA [None]
  - VISION BLURRED [None]
